FAERS Safety Report 6567508-4 (Version None)
Quarter: 2010Q1

REPORT INFORMATION
  Report Type: 
  Country: None (occurrence: None)
  Receive Date: 20100202
  Receipt Date: 20100201
  Transmission Date: 20100710
  Serious: Yes (Life-Threatening, Hospitalization)
  Sender: FDA-Public Use
  Company Number: FR-ABBOTT-10P-056-0621487-00

PATIENT
  Sex: Female

DRUGS (2)
  1. KALETRA [Suspect]
     Indication: HIV TEST POSITIVE
     Dates: start: 20060719
  2. TRUVADA [Suspect]
     Indication: HIV INFECTION
     Dosage: 200 MG / 245 MG
     Dates: start: 20060719, end: 20090520

REACTIONS (4)
  - CHEST PAIN [None]
  - HYPOKALAEMIA [None]
  - METABOLIC ACIDOSIS [None]
  - OSTEOMALACIA [None]
